FAERS Safety Report 20460029 (Version 1)
Quarter: 2022Q1

REPORT INFORMATION
  Report Type: Report from Study
  Country: US (occurrence: US)
  Receive Date: 20220211
  Receipt Date: 20220211
  Transmission Date: 20220423
  Serious: Yes (Hospitalization)
  Sender: FDA-Public Use
  Company Number: US-JAZZ-2021-US-004041

PATIENT
  Age: 12 Year
  Sex: Male
  Weight: 56.9 kg

DRUGS (39)
  1. ASPARAGINASE ERWINIA CHRYSANTHEMI [Suspect]
     Active Substance: ASPARAGINASE ERWINIA CHRYSANTHEMI
     Indication: Acute lymphocytic leukaemia
     Dosage: 35.75 MILLIGRAM, 3XWEEKLY PER 2W COURSE
     Route: 030
     Dates: start: 20210303, end: 20210315
  2. ASPARAGINASE ERWINIA CHRYSANTHEMI [Suspect]
     Active Substance: ASPARAGINASE ERWINIA CHRYSANTHEMI
     Dosage: 38.75 MILLIGRAM, 3XWEEKLY PER 2W COURSE
     Route: 030
     Dates: end: 20210707
  3. ASPARAGINASE ERWINIA CHRYSANTHEMI [Suspect]
     Active Substance: ASPARAGINASE ERWINIA CHRYSANTHEMI
     Dosage: 78.0 MILLIGRAM, 3XWEEKLY PER 2W COURSE
     Route: 030
     Dates: end: 20210820
  4. CYTARABINE [Suspect]
     Active Substance: CYTARABINE
     Dosage: 110 MILLIGRAM INTERMITTENT
     Route: 042
     Dates: start: 20210221
  5. MERCAPTOPURINE [Suspect]
     Active Substance: MERCAPTOPURINE
     Dosage: 100 MILLIGRAM M-T QHS
     Route: 048
     Dates: start: 20210210, end: 20210223
  6. MERCAPTOPURINE [Suspect]
     Active Substance: MERCAPTOPURINE
     Dosage: 75 MILLIGRAM F-SUN QHS
     Route: 048
     Dates: start: 20210210, end: 20210223
  7. VINCRISTINE [Suspect]
     Active Substance: VINCRISTINE
     Dosage: 2 MILLIGRAM INTERMITTENT
     Route: 042
     Dates: start: 20210223
  8. VINCRISTINE [Suspect]
     Active Substance: VINCRISTINE
     Dosage: 1 MILLIGRAM INTERMITTENT
     Route: 042
     Dates: start: 20201208
  9. CYCLOPHOSPHAMIDE [Suspect]
     Active Substance: CYCLOPHOSPHAMIDE
     Dosage: 1480 MILLIGRAM INTERMITTENT
     Route: 042
     Dates: start: 20210210, end: 20210210
  10. ACYCLOVIR [Concomitant]
     Active Substance: ACYCLOVIR
     Dosage: 500 MILLIGRAM, BID
     Dates: start: 20210222, end: 20210223
  11. GABAPENTIN [Concomitant]
     Active Substance: GABAPENTIN
     Dosage: 200 MILLIGRAM, QID
     Dates: start: 20210222, end: 20210224
  12. GABAPENTIN [Concomitant]
     Active Substance: GABAPENTIN
     Dosage: 1000 MILLIGRAM, QD
     Route: 048
     Dates: start: 20210209
  13. GABAPENTIN [Concomitant]
     Active Substance: GABAPENTIN
     Dosage: 1300 MILLIGRAM, QD
     Route: 048
     Dates: start: 20210816
  14. ONDANSETRON [Concomitant]
     Active Substance: ONDANSETRON
     Dosage: 8 MILLIGRAM, QD
     Dates: start: 20210222, end: 20210223
  15. ONDANSETRON [Concomitant]
     Active Substance: ONDANSETRON
     Dosage: 8 MILLIGRAM, PRN Q8H
     Route: 048
     Dates: start: 20210105
  16. MIRALAX [Concomitant]
     Active Substance: POLYETHYLENE GLYCOL 3350
     Dosage: 17 GRAM, QD
     Dates: start: 20210222, end: 20210224
  17. MIRALAX [Concomitant]
     Active Substance: POLYETHYLENE GLYCOL 3350
     Dosage: 17 GRAM, PRN
     Route: 048
     Dates: start: 20201208
  18. POSACONAZOLE [Concomitant]
     Active Substance: POSACONAZOLE
     Dosage: 300 MILLIGRAM, QD
     Dates: start: 20210222, end: 20210224
  19. POSACONAZOLE [Concomitant]
     Active Substance: POSACONAZOLE
     Dosage: 300 MILLIGRAM, QD
     Route: 048
     Dates: start: 20210204
  20. BISACODYL [Concomitant]
     Active Substance: BISACODYL
     Dosage: 5 MILLIGRAM, QD
     Dates: start: 20210222, end: 20210223
  21. BISACODYL [Concomitant]
     Active Substance: BISACODYL
     Dosage: 5 MILLIGRAM, QHS PRN
     Route: 048
     Dates: start: 20210204
  22. FAMOTIDINE [Concomitant]
     Active Substance: FAMOTIDINE
     Dosage: 20 MILLIGRAM, BID
     Dates: start: 20210223, end: 20210224
  23. HYDROCORTISONE [Concomitant]
     Active Substance: HYDROCORTISONE
     Dosage: 50.8 MILLIGRAM, SINGLE
     Dates: start: 20210223
  24. DIPHENHYDRAMINE [Concomitant]
     Active Substance: DIPHENHYDRAMINE
     Dosage: 50 MILLIGRAM, BID
     Dates: start: 20210223, end: 20210223
  25. PEGASPARGASE [Concomitant]
     Active Substance: PEGASPARGASE
     Dosage: 3750 UNIT, SINGLE
     Dates: start: 20210223, end: 20210223
  26. EPINEPHRINE [Concomitant]
     Active Substance: EPINEPHRINE
     Dosage: 0.5 MILLIGRAM, SINGLE
     Dates: start: 20210223
  27. HYDROXYZINE [Concomitant]
     Active Substance: HYDROXYZINE HYDROCHLORIDE
     Dosage: 50 MILLIGRAM, SINGLE
     Dates: start: 20210223, end: 20210223
  28. CETIRIZINE [Concomitant]
     Active Substance: CETIRIZINE HYDROCHLORIDE
     Dosage: 5 MILLIGRAM, SINGLE
     Dates: start: 20210224
  29. VALACYCLOVIR [Concomitant]
     Active Substance: VALACYCLOVIR HYDROCHLORIDE
     Dosage: 500 MILLIGRAM, BID
     Route: 048
     Dates: start: 20210222
  30. HEPARIN SODIUM [Concomitant]
     Active Substance: HEPARIN SODIUM
     Dosage: 300 UNITS
     Dates: start: 20210224, end: 20210226
  31. METHOTREXATE [Suspect]
     Active Substance: METHOTREXATE
     Dosage: 15 MILLIGRAM INTERMITTENT
     Route: 037
     Dates: start: 20201216, end: 20210805
  32. LORAZEPAM [Concomitant]
     Active Substance: LORAZEPAM
     Dosage: 1 MILLIGRAM, PRN
     Route: 048
     Dates: start: 20210531
  33. LORAZEPAM [Concomitant]
     Active Substance: LORAZEPAM
     Dosage: 2 UNK
     Route: 042
     Dates: start: 20210205
  34. THIOGUANINE [Suspect]
     Active Substance: THIOGUANINE
     Dosage: 80-100 MILLIGRAM, QHS
     Route: 048
     Dates: start: 20210729, end: 20210811
  35. BACTRIM [Concomitant]
     Active Substance: SULFAMETHOXAZOLE\TRIMETHOPRIM
     Dosage: 800/160MG, BID SAT SUN
     Route: 048
     Dates: start: 20201210
  36. SENNA LEAF [Concomitant]
     Active Substance: SENNA LEAF
     Dosage: 8.6 MILLIGRAM, QD
     Route: 048
     Dates: start: 20210302
  37. OMEPRAZOLE [Concomitant]
     Active Substance: OMEPRAZOLE
     Dosage: 20 MILLIGRAM, QD
     Route: 048
     Dates: start: 20210307
  38. SIMETHICONE (DIMETHICONE) [Concomitant]
     Active Substance: DIMETHICONE
     Dosage: 80 MILLIGRAM, PRN
     Route: 048
     Dates: start: 20210317
  39. DEXTROMETHORPHAN [Concomitant]
     Active Substance: DEXTROMETHORPHAN
     Dosage: 54 MILLIGRAM, BID
     Route: 048
     Dates: start: 20210816, end: 20210818

REACTIONS (6)
  - Anaemia [Recovered/Resolved]
  - Febrile neutropenia [Recovered/Resolved]
  - Pneumonia [Recovered/Resolved]
  - Febrile neutropenia [Recovered/Resolved]
  - Febrile neutropenia [Recovered/Resolved]
  - Febrile neutropenia [Recovered/Resolved]

NARRATIVE: CASE EVENT DATE: 20210301
